FAERS Safety Report 6582145-3 (Version None)
Quarter: 2010Q1

REPORT INFORMATION
  Report Type: 
  Country: None (occurrence: None)
  Receive Date: 20100216
  Receipt Date: 20100208
  Transmission Date: 20100710
  Serious: Yes (Other)
  Sender: FDA-Public Use
  Company Number: FI-WYE-G05544710

PATIENT

DRUGS (1)
  1. EFFEXOR [Suspect]
     Dosage: UNSPECIFIED

REACTIONS (1)
  - ELECTROCARDIOGRAM CHANGE [None]
